FAERS Safety Report 4879557-2 (Version None)
Quarter: 2006Q1

REPORT INFORMATION
  Report Type: 
  Country: None (occurrence: None)
  Receive Date: 20060113
  Receipt Date: 20060105
  Transmission Date: 20060701
  Serious: Yes (Other)
  Sender: FDA-Public Use
  Company Number: PHBS2006BE00547

PATIENT
  Age: 51 Year
  Sex: Male

DRUGS (5)
  1. LAMISIL [Suspect]
     Indication: NAIL TINEA
     Dosage: 250 MG/DAY
     Route: 048
     Dates: start: 20041201, end: 20050401
  2. VALIUM [Concomitant]
  3. VALTRAN [Concomitant]
  4. TRAZOLAN [Concomitant]
  5. STAURODORM [Concomitant]

REACTIONS (4)
  - DEMYELINATING POLYNEUROPATHY [None]
  - DIABETES MELLITUS NON-INSULIN-DEPENDENT [None]
  - NERVE CONDUCTION STUDIES ABNORMAL [None]
  - PARAESTHESIA [None]
